FAERS Safety Report 23034158 (Version 2)
Quarter: 2024Q2

REPORT INFORMATION
  Report Type: Spontaneous
  Country: DE (occurrence: DE)
  Receive Date: 20231005
  Receipt Date: 20240603
  Transmission Date: 20240715
  Serious: Yes (Other)
  Sender: FDA-Public Use
  Company Number: DE-BIOVITRUM-2023-DE-015473

PATIENT
  Age: 9 Year
  Sex: Female

DRUGS (2)
  1. KINERET [Suspect]
     Active Substance: ANAKINRA
     Indication: Still^s disease
  2. CANAKINUMAB [Suspect]
     Active Substance: CANAKINUMAB
     Indication: Product used for unknown indication
     Dosage: EVERY 2 DAYS

REACTIONS (1)
  - Haemophagocytic lymphohistiocytosis [Recovering/Resolving]
